FAERS Safety Report 5941899-7 (Version None)
Quarter: 2008Q4

REPORT INFORMATION
  Report Type: 
  Country: None (occurrence: None)
  Receive Date: 20081031
  Receipt Date: 20081015
  Transmission Date: 20090506
  Serious: Yes (Other)
  Sender: FDA-Public Use
  Company Number: 08C517

PATIENT
  Age: 41 Year
  Sex: Female
  Weight: 40.8237 kg

DRUGS (1)
  1. PURALUBE OPHTHALMIC OINTMENT [Suspect]
     Indication: DRY EYE
     Dosage: APPLIED ON EYE 1X
     Dates: start: 20081015

REACTIONS (5)
  - EYE IRRITATION [None]
  - EYE SWELLING [None]
  - FOREIGN BODY SENSATION IN EYES [None]
  - OCULAR HYPERAEMIA [None]
  - PRODUCT QUALITY ISSUE [None]
